FAERS Safety Report 13287666 (Version 1)
Quarter: 2017Q1

REPORT INFORMATION
  Report Type: Report from Study
  Country: CO (occurrence: CO)
  Receive Date: 20170302
  Receipt Date: 20170302
  Transmission Date: 20170428
  Serious: Yes (Other)
  Sender: FDA-Public Use
  Company Number: PHHY2017CO023377

PATIENT
  Age: 46 Year
  Weight: 90 kg

DRUGS (1)
  1. TASIGNA [Suspect]
     Active Substance: NILOTINIB
     Indication: CHRONIC MYELOID LEUKAEMIA
     Dosage: 300 MG, Q12H (300MG IN THE MORNING AND 300MG IN THE AFTERNOON)
     Route: 048
     Dates: start: 20131228, end: 201608

REACTIONS (5)
  - Headache [Unknown]
  - Blood triglycerides increased [Unknown]
  - Chronic myeloid leukaemia recurrent [Unknown]
  - Nausea [Unknown]
  - Dizziness [Unknown]

NARRATIVE: CASE EVENT DATE: 201603
